FAERS Safety Report 9057256 (Version 1)
Quarter: 2013Q1

REPORT INFORMATION
  Report Type: Report from Study
  Country: JP (occurrence: JP)
  Receive Date: 20130131
  Receipt Date: 20130131
  Transmission Date: 20140127
  Serious: Yes (Other)
  Sender: FDA-Public Use
  Company Number: JP-GLAXOSMITHKLINE-B0858776A

PATIENT
  Age: 64 None
  Sex: Male

DRUGS (6)
  1. SERETIDE [Suspect]
     Indication: ASTHMA
     Dosage: 500MCG TWICE PER DAY
     Route: 055
     Dates: start: 20081210
  2. SPIRIVA [Concomitant]
     Indication: ASTHMA
     Route: 055
  3. THEODUR [Concomitant]
     Indication: ASTHMA
     Route: 048
     Dates: start: 20081210
  4. OMEPRAL [Concomitant]
     Route: 048
  5. ALESION [Concomitant]
     Route: 048
     Dates: start: 20081210, end: 20090404
  6. POSTERISAN [Concomitant]
     Route: 061

REACTIONS (2)
  - Asthma [Recovered/Resolved]
  - Bronchopneumonia [Recovered/Resolved]
